FAERS Safety Report 5415553-4 (Version None)
Quarter: 2007Q3

REPORT INFORMATION
  Report Type: 
  Country: None (occurrence: None)
  Receive Date: 20070815
  Receipt Date: 20070813
  Transmission Date: 20080115
  Serious: Yes (Disabling, Other)
  Sender: FDA-Public Use
  Company Number: B0483115A

PATIENT
  Age: 18 Year
  Sex: Female

DRUGS (4)
  1. AMOXICILLIN [Suspect]
     Route: 048
     Dates: start: 20061106, end: 20061111
  2. IBUPROFEN [Suspect]
     Route: 048
     Dates: start: 20061106, end: 20061111
  3. THIOVALONE [Suspect]
     Route: 048
     Dates: start: 20061106, end: 20061111
  4. DOLIPRANE [Concomitant]
     Route: 048
     Dates: start: 20061106, end: 20061111

REACTIONS (7)
  - ANGIOEDEMA [None]
  - APHTHOUS STOMATITIS [None]
  - LIP OEDEMA [None]
  - MOUTH ULCERATION [None]
  - SKIN FISSURES [None]
  - STEVENS-JOHNSON SYNDROME [None]
  - ULCER HAEMORRHAGE [None]
